FAERS Safety Report 11932008 (Version 2)
Quarter: 2018Q2

REPORT INFORMATION
  Report Type: Spontaneous
  Country: US (occurrence: US)
  Receive Date: 20160120
  Receipt Date: 20180416
  Transmission Date: 20180711
  Serious: Yes (Death)
  Sender: FDA-Public Use
  Company Number: US-PFIZER INC-2016020182

PATIENT
  Age: 62 Year
  Sex: Male
  Weight: 69.84 kg

DRUGS (8)
  1. LYRICA [Suspect]
     Active Substance: PREGABALIN
     Indication: PAIN IN EXTREMITY
     Dosage: 500 MG, DAILY (5 CAPSULES OF LYRICA IN A 24 HOUR PERIOD)
     Route: 048
  2. LYRICA [Suspect]
     Active Substance: PREGABALIN
     Indication: NEUROPATHY PERIPHERAL
  3. DILAUDID [Concomitant]
     Active Substance: HYDROMORPHONE HYDROCHLORIDE
     Indication: PAIN
     Dosage: 2 MG, UNK (EVERY SO OFTEN VIA PAIN PUMP INSERTED INTO HIS LEFT SIDE)
     Dates: start: 20120911, end: 20180401
  4. DILAUDID [Concomitant]
     Active Substance: HYDROMORPHONE HYDROCHLORIDE
     Indication: NERVE INJURY
  5. COREG [Concomitant]
     Active Substance: CARVEDILOL
     Dosage: 25 MG, 2X/DAY
  6. LYRICA [Suspect]
     Active Substance: PREGABALIN
     Indication: DIABETIC NEUROPATHY
     Dosage: 100 MG, 4X/DAY
     Route: 048
     Dates: start: 2011
  7. LYRICA [Suspect]
     Active Substance: PREGABALIN
     Indication: PANCREATIC CARCINOMA
     Dosage: 100 MG, AS NEEDED (EVERY 6 HOURS AS NEEDED)
     Route: 048
     Dates: end: 20180401
  8. ONDANSETRON [Concomitant]
     Active Substance: ONDANSETRON
     Indication: NAUSEA
     Dosage: UNK

REACTIONS (5)
  - Fall [Unknown]
  - Somnolence [Unknown]
  - Balance disorder [Unknown]
  - Cerebral haemorrhage [Fatal]
  - Intentional product use issue [Unknown]
